FAERS Safety Report 10277000 (Version 2)
Quarter: 2014Q3

REPORT INFORMATION
  Report Type: Spontaneous
  Country: US (occurrence: US)
  Receive Date: 20140703
  Receipt Date: 20140715
  Transmission Date: 20150326
  Serious: Yes (Other)
  Sender: FDA-Public Use
  Company Number: US-BRISTOL-MYERS SQUIBB COMPANY-21077854

PATIENT
  Age: 66 Year
  Sex: Male
  Weight: 79.36 kg

DRUGS (2)
  1. METFORMIN HCL [Suspect]
     Active Substance: METFORMIN HYDROCHLORIDE
     Indication: BLOOD GLUCOSE INCREASED
     Dosage: INITIALLY 500 MG
  2. LISINOPRIL. [Concomitant]
     Active Substance: LISINOPRIL
     Dosage: PREVIOUSLY 20 MG

REACTIONS (4)
  - Muscle spasms [Unknown]
  - Peripheral swelling [Unknown]
  - Gait disturbance [Unknown]
  - Drug ineffective [Unknown]
